FAERS Safety Report 14488236 (Version 1)
Quarter: 2018Q1

REPORT INFORMATION
  Report Type: Spontaneous
  Country: IL (occurrence: IL)
  Receive Date: 20180205
  Receipt Date: 20180205
  Transmission Date: 20180509
  Serious: Yes (Other)
  Sender: FDA-Public Use
  Company Number: IL-BAYER-2017-232059

PATIENT
  Age: 75 Year
  Sex: Female

DRUGS (2)
  1. ASPIRIN CARDIO 100 MG [Suspect]
     Active Substance: ASPIRIN
     Dosage: UNK
  2. XARELTO [Suspect]
     Active Substance: RIVAROXABAN
     Indication: ATRIAL FIBRILLATION
     Dosage: UNK
     Dates: start: 2013

REACTIONS (2)
  - Blindness [Recovered/Resolved]
  - Eye haemorrhage [None]

NARRATIVE: CASE EVENT DATE: 2016
